FAERS Safety Report 6726106-X (Version None)
Quarter: 2010Q2

REPORT INFORMATION
  Report Type: 
  Country: None (occurrence: None)
  Receive Date: 20100514
  Receipt Date: 20100507
  Transmission Date: 20101027
  Serious: Yes (Hospitalization)
  Sender: FDA-Public Use
  Company Number: IT-PFIZER INC-2010030227

PATIENT
  Age: 55 Year
  Sex: Female

DRUGS (2)
  1. TORVAST [Suspect]
     Indication: HYPERCHOLESTEROLAEMIA
     Dosage: 40 MG, X/DAY
     Route: 048
     Dates: start: 20100201, end: 20100207
  2. PLAVIX [Suspect]
     Indication: MYOCARDIAL INFARCTION
     Dosage: 75 MG, DAILY
     Route: 048
     Dates: start: 20100201, end: 20100207

REACTIONS (1)
  - DERMATITIS [None]
